FAERS Safety Report 19037596 (Version 3)
Quarter: 2021Q2

REPORT INFORMATION
  Report Type: Spontaneous
  Country: TR (occurrence: TR)
  Receive Date: 20210322
  Receipt Date: 20210514
  Transmission Date: 20210717
  Serious: Yes (Hospitalization, Other)
  Sender: FDA-Public Use
  Company Number: TR-ACCORD-219100

PATIENT
  Age: 29 Year
  Sex: Female

DRUGS (2)
  1. CLOZAPINE. [Suspect]
     Active Substance: CLOZAPINE
     Indication: SCHIZOPHRENIA
     Dosage: 12 HOURS, 300 MG
     Dates: start: 2017, end: 2017
  2. CLOZAPINE. [Suspect]
     Active Substance: CLOZAPINE
     Indication: SCHIZOPHRENIA
     Dosage: 12 HOURS, 300 MG
     Dates: start: 2017, end: 2017

REACTIONS (8)
  - Pancreatitis acute [Recovered/Resolved]
  - Hepatitis [Recovered/Resolved]
  - Transaminases increased [Recovered/Resolved]
  - Leukocytosis [Unknown]
  - C-reactive protein increased [Recovered/Resolved]
  - Myocardial necrosis marker increased [Recovered/Resolved]
  - Neutropenia [Unknown]
  - Eosinophilia [Unknown]

NARRATIVE: CASE EVENT DATE: 2017
